FAERS Safety Report 7918681 (Version 3)
Quarter: 2013Q2

REPORT INFORMATION
  Report Type: Spontaneous
  Country: US (occurrence: US)
  Receive Date: 20110428
  Receipt Date: 20130507
  Transmission Date: 20140414
  Serious: Yes (Hospitalization)
  Sender: FDA-Public Use
  Company Number: US-BAYER-2010-001529

PATIENT
  Age: 37 Year
  Sex: Female
  Weight: 58.96 kg

DRUGS (4)
  1. YASMIN [Suspect]
     Indication: PRODUCT USED FOR UNKNOWN INDICATION
     Dosage: UNK
     Dates: start: 20070918, end: 20081128
  2. YAZ [Suspect]
     Indication: CONTRACEPTION
     Dosage: UNK
     Dates: start: 20010918, end: 20081127
  3. MOTRIN [Concomitant]
  4. ADVIL [Concomitant]

REACTIONS (4)
  - Pulmonary embolism [None]
  - Dyspnoea [None]
  - Abdominal pain [None]
  - Urinary tract infection [None]
